FAERS Safety Report 19555380 (Version 1)
Quarter: 2021Q3

REPORT INFORMATION
  Report Type: Spontaneous
  Country: US (occurrence: US)
  Receive Date: 20210714
  Receipt Date: 20210714
  Transmission Date: 20211014
  Serious: No
  Sender: FDA-Public Use
  Company Number: US-GLENMARK PHARMACEUTICALS-2021GMK052646

PATIENT
  Sex: Female

DRUGS (3)
  1. MOMETASONE FUROATE OINTMENT USP, 0.1% [Suspect]
     Active Substance: MOMETASONE FUROATE
     Indication: VULVOVAGINAL PRURITUS
  2. MOMETASONE FUROATE OINTMENT USP, 0.1% [Suspect]
     Active Substance: MOMETASONE FUROATE
     Indication: VULVOVAGINAL DRYNESS
     Dosage: UNK
     Route: 067
  3. MOMETASONE FUROATE OINTMENT USP, 0.1% [Suspect]
     Active Substance: MOMETASONE FUROATE
     Indication: GENITAL BLISTER

REACTIONS (2)
  - Incorrect route of product administration [Unknown]
  - Drug ineffective for unapproved indication [Unknown]
